FAERS Safety Report 12622785 (Version 1)
Quarter: 2016Q3

REPORT INFORMATION
  Report Type: Spontaneous
  Country: DE (occurrence: DE)
  Receive Date: 20160804
  Receipt Date: 20160804
  Transmission Date: 20161109
  Serious: Yes (Hospitalization)
  Sender: FDA-Public Use
  Company Number: DE-009507513-1608DEU000511

PATIENT
  Sex: Male

DRUGS (4)
  1. KIVEXA [Suspect]
     Active Substance: ABACAVIR SULFATE\LAMIVUDINE
     Indication: HIV INFECTION
     Dosage: UNK
  2. CALCIUM (UNSPECIFIED) [Interacting]
     Active Substance: CALCIUM
  3. ISENTRESS [Suspect]
     Active Substance: RALTEGRAVIR POTASSIUM
     Indication: HIV INFECTION
     Dosage: UNK
     Route: 048
  4. MAGNESIUM (UNSPECIFIED) [Interacting]
     Active Substance: MAGNESIUM

REACTIONS (3)
  - Drug interaction [Unknown]
  - Condition aggravated [Unknown]
  - Gastric disorder [Unknown]
